FAERS Safety Report 8212405-1 (Version None)
Quarter: 2012Q1

REPORT INFORMATION
  Report Type: 
  Country: None (occurrence: None)
  Receive Date: 20120229
  Receipt Date: 20110503
  Transmission Date: 20120608
  Serious: Yes (Life-Threatening, Hospitalization, Other)
  Sender: FDA-Public Use
  Company Number: PHHY2011US37039

PATIENT
  Sex: Female
  Weight: 65.3 kg

DRUGS (4)
  1. TEGRETOL [Suspect]
  2. LYRICA [Suspect]
     Indication: NERVE INJURY
     Dosage: ORAL
     Route: 048
  3. GLIPIZIDE [Concomitant]
  4. DARVOCET [Concomitant]

REACTIONS (6)
  - HEADACHE [None]
  - OEDEMA PERIPHERAL [None]
  - HYPONATRAEMIA [None]
  - TINNITUS [None]
  - SLEEP DISORDER [None]
  - FLUID RETENTION [None]
